FAERS Safety Report 6173714-3 (Version None)
Quarter: 2009Q2

REPORT INFORMATION
  Report Type: 
  Country: None (occurrence: None)
  Receive Date: 20090430
  Receipt Date: 20090422
  Transmission Date: 20091009
  Serious: Yes (Hospitalization)
  Sender: FDA-Public Use
  Company Number: PHHY2009JP07031

PATIENT
  Sex: Female

DRUGS (8)
  1. DIOVAN T30230+TAB+HY [Suspect]
     Indication: HYPERTENSION
     Dosage: 80 MG, QD
     Route: 048
     Dates: start: 20070904, end: 20071213
  2. NORVASC [Concomitant]
     Indication: HYPERTENSION
     Dosage: UNK
     Route: 048
     Dates: start: 20050210, end: 20070903
  3. TENORMIN [Concomitant]
     Indication: HYPERTENSION
     Dosage: UNK
     Route: 048
     Dates: start: 20050210, end: 20070903
  4. NATRIX [Concomitant]
     Indication: HYPERTENSION
     Dosage: UNK
     Dates: start: 20070904
  5. ADALAT CC [Concomitant]
     Indication: HYPERTENSION
     Dosage: UNK
     Dates: start: 20070906
  6. MEVALOTIN [Concomitant]
     Dosage: UNK
     Route: 048
     Dates: start: 20050210
  7. MUCOSTA [Concomitant]
     Dosage: UNK
     Dates: start: 20050210
  8. ALINAMIN F [Concomitant]
     Dosage: UNK
     Route: 048
     Dates: start: 20050210

REACTIONS (2)
  - DYSPHAGIA [None]
  - HYPERLIPIDAEMIA [None]
